FAERS Safety Report 14358006 (Version 5)
Quarter: 2018Q1

REPORT INFORMATION
  Report Type: Report from Study
  Country: US (occurrence: US)
  Receive Date: 20180105
  Receipt Date: 20180306
  Transmission Date: 20180509
  Serious: Yes (Hospitalization, Other)
  Sender: FDA-Public Use
  Company Number: US-AMGEN-USASP2017185328

PATIENT
  Age: 82 Year
  Sex: Female

DRUGS (2)
  1. REPATHA [Suspect]
     Active Substance: EVOLOCUMAB
     Indication: HYPERLIPIDAEMIA
     Dosage: 140 MG, Q2WK
     Route: 058
     Dates: start: 201704
  2. REPATHA [Suspect]
     Active Substance: EVOLOCUMAB
     Indication: HYPERCHOLESTEROLAEMIA
     Dosage: 140 MG, QMO
     Route: 058

REACTIONS (8)
  - Urinary tract infection [Unknown]
  - Off label use [Unknown]
  - Osteoarthritis [Unknown]
  - Muscle spasms [Recovering/Resolving]
  - Blood glucose increased [Unknown]
  - Sepsis [Unknown]
  - Muscle mass [Unknown]
  - Productive cough [Unknown]

NARRATIVE: CASE EVENT DATE: 2017
